FAERS Safety Report 8517887-3 (Version None)
Quarter: 2012Q3

REPORT INFORMATION
  Report Type: 
  Country: None (occurrence: None)
  Receive Date: 20120718
  Receipt Date: 20110804
  Transmission Date: 20120928
  Serious: No
  Sender: FDA-Public Use
  Company Number: US-BRISTOL-MYERS SQUIBB COMPANY-15868649

PATIENT
  Sex: Male
  Weight: 113 kg

DRUGS (2)
  1. COUMADIN [Suspect]
     Indication: DEEP VEIN THROMBOSIS
     Dosage: RECENT 07JUN2011.INTER FOR 2 DAYS REST ON 01JUL11.USUAL DOSE 12.5MG DAILY.
     Dates: start: 20101001
  2. COUMADIN [Suspect]
     Indication: PULMONARY EMBOLISM
     Dosage: RECENT 07JUN2011.INTER FOR 2 DAYS REST ON 01JUL11.USUAL DOSE 12.5MG DAILY.
     Dates: start: 20101001

REACTIONS (1)
  - INTERNATIONAL NORMALISED RATIO INCREASED [None]
